FAERS Safety Report 25574678 (Version 1)
Quarter: 2025Q3

REPORT INFORMATION
  Report Type: Spontaneous
  Country: EU (occurrence: EU)
  Receive Date: 20250718
  Receipt Date: 20250718
  Transmission Date: 20251020
  Serious: Yes (Other)
  Sender: NOVITIUM PHARMA
  Company Number: EU-NOVITIUMPHARMA-2025FRNVP01627

PATIENT
  Sex: Male

DRUGS (12)
  1. SILDENAFIL CITRATE [Suspect]
     Active Substance: SILDENAFIL CITRATE
     Indication: Product used for unknown indication
  2. COCAETHYLENE [Concomitant]
     Active Substance: COCAETHYLENE
     Indication: Product used for unknown indication
  3. KETAMINE [Concomitant]
     Active Substance: KETAMINE
     Indication: Product used for unknown indication
  4. HYDROXYZINE [Concomitant]
     Active Substance: HYDROXYZINE HYDROCHLORIDE
     Indication: Product used for unknown indication
  5. DOXYLAMINE [Concomitant]
     Active Substance: DOXYLAMINE
     Indication: Product used for unknown indication
  6. ZOPICLONE [Concomitant]
     Active Substance: ZOPICLONE
     Indication: Product used for unknown indication
  7. BENZOYLECGONINE [Concomitant]
     Active Substance: BENZOYLECGONINE
     Indication: Product used for unknown indication
  8. 3-methylmethcathinon [Concomitant]
     Indication: Product used for unknown indication
  9. OXYBATE [Concomitant]
     Active Substance: OXYBATE
     Indication: Product used for unknown indication
  10. COCAINE [Concomitant]
     Active Substance: COCAINE
     Indication: Product used for unknown indication
  11. ECGONINE METHYL ESTER [Concomitant]
     Active Substance: ECGONINE METHYL ESTER
     Indication: Product used for unknown indication
  12. MIDOMAFETAMINE [Concomitant]
     Active Substance: MIDOMAFETAMINE
     Indication: Product used for unknown indication

REACTIONS (1)
  - Drug abuse [Unknown]
